FAERS Safety Report 5902227-6 (Version None)
Quarter: 2008Q3

REPORT INFORMATION
  Report Type: 
  Country: None (occurrence: None)
  Receive Date: 20080929
  Receipt Date: 20080917
  Transmission Date: 20090109
  Serious: Yes (Other)
  Sender: FDA-Public Use
  Company Number: JP-PFIZER INC-2008080210

PATIENT
  Age: 58 Year
  Sex: Female

DRUGS (6)
  1. FARMORUBICIN [Suspect]
     Indication: BREAST CANCER
     Dosage: DAILY DOSE:120MG
     Route: 042
     Dates: start: 20080818
  2. FLUOROURACIL [Suspect]
     Indication: BREAST CANCER
     Dosage: DAILY DOSE:600MG
     Route: 042
     Dates: start: 20080818
  3. ENDOXAN [Suspect]
     Indication: BREAST CANCER
     Dosage: DAILY DOSE:650MG
     Route: 042
     Dates: start: 20080818
  4. DECADRON [Concomitant]
     Dates: start: 20080819, end: 20080913
  5. ZOFRAN [Concomitant]
     Dates: start: 20080819, end: 20080913
  6. FAMOTIDINE [Concomitant]
     Dates: start: 20080819, end: 20080913

REACTIONS (4)
  - FEBRILE NEUTROPENIA [None]
  - NEURALGIA [None]
  - ORAL HERPES [None]
  - STOMATITIS [None]
